FAERS Safety Report 18247740 (Version 6)
Quarter: 2020Q4

REPORT INFORMATION
  Report Type: Spontaneous
  Country: US (occurrence: US)
  Receive Date: 20200909
  Receipt Date: 20201215
  Transmission Date: 20210113
  Serious: Yes (Hospitalization)
  Sender: FDA-Public Use
  Company Number: US-GLAXOSMITHKLINE-US2020AMR178535

PATIENT
  Sex: Female
  Weight: 46 kg

DRUGS (9)
  1. REMODULIN [Suspect]
     Active Substance: TREPROSTINIL
     Indication: PULMONARY ARTERIAL HYPERTENSION
     Dosage: 2.5 MG/ML
     Route: 058
     Dates: start: 20200923
  2. REMODULIN [Suspect]
     Active Substance: TREPROSTINIL
     Dosage: UNK, 0.020 ?G/KG,
     Route: 058
     Dates: start: 202009
  3. COUMADIN [Concomitant]
     Active Substance: WARFARIN SODIUM
     Indication: PRODUCT USED FOR UNKNOWN INDICATION
     Dosage: UNK
     Route: 065
  4. UPTRAVI [Suspect]
     Active Substance: SELEXIPAG
     Indication: PRODUCT USED FOR UNKNOWN INDICATION
     Dosage: UNK
     Route: 065
  5. REMODULIN [Suspect]
     Active Substance: TREPROSTINIL
     Dosage: 0.002 UG/KG
     Route: 058
     Dates: start: 202009
  6. AMBRISENTAN [Concomitant]
     Active Substance: AMBRISENTAN
     Indication: PRODUCT USED FOR UNKNOWN INDICATION
     Dosage: UNK
     Route: 065
  7. FLOLAN [Suspect]
     Active Substance: EPOPROSTENOL SODIUM
     Indication: PULMONARY ARTERIAL HYPERTENSION
     Dosage: 9 DF, CO (9 NG/KG/MIN)
     Route: 065
     Dates: start: 20200828, end: 202009
  8. FLOLAN DILUENT PH 12 [Suspect]
     Active Substance: GLYCINE\MANNITOL\SODIUM CHLORIDE
     Indication: PULMONARY ARTERIAL HYPERTENSION
     Dosage: UNK
     Route: 065
     Dates: start: 20200828
  9. FLOLAN [Suspect]
     Active Substance: EPOPROSTENOL SODIUM
     Indication: PULMONARY ARTERIAL HYPERTENSION
     Dosage: 9 DF, CO (9 NG/KG/MIN)
     Route: 065
     Dates: start: 20200828, end: 202009

REACTIONS (11)
  - Therapy change [Unknown]
  - Diarrhoea [Unknown]
  - Infusion site swelling [Unknown]
  - Infusion site irritation [Unknown]
  - Chest pain [Unknown]
  - Oedema peripheral [Unknown]
  - Adverse drug reaction [Unknown]
  - Peripheral swelling [Unknown]
  - Infusion site pain [Unknown]
  - Anxiety [Unknown]
  - Infusion site erythema [Unknown]
